FAERS Safety Report 8787928 (Version 4)
Quarter: 2012Q4

REPORT INFORMATION
  Report Type: 
  Country: CA (occurrence: CA)
  Receive Date: 20120914
  Receipt Date: 20121127
  Transmission Date: 20130627
  Serious: Yes (Death, Other)
  Sender: FDA-Public Use
  Company Number: CA-PFIZER INC-2012224217

PATIENT

DRUGS (1)
  1. EPINEPHRINE [Suspect]
     Dosage: 1 mg/mL (1:1,000), Unk
     Route: 051

REACTIONS (5)
  - Incorrect dose administered [Unknown]
  - Arrhythmia [Fatal]
  - Cardiac arrest [Fatal]
  - Medication error [None]
  - Incorrect route of drug administration [None]
